FAERS Safety Report 14757464 (Version 1)
Quarter: 2018Q2

REPORT INFORMATION
  Report Type: Spontaneous
  Country: FR (occurrence: FR)
  Receive Date: 20180413
  Receipt Date: 20180413
  Transmission Date: 20180711
  Serious: Yes (Other)
  Sender: FDA-Public Use
  Company Number: FR-AUROBINDO-AUR-APL-2018-019690

PATIENT
  Age: 35 Year
  Sex: Female

DRUGS (3)
  1. PREDNISONE. [Suspect]
     Active Substance: PREDNISONE
     Dosage: 10 MILLIGRAM 1 PER DAY
     Route: 065
  2. PREDNISONE. [Suspect]
     Active Substance: PREDNISONE
     Indication: BIRDSHOT CHORIORETINOPATHY
     Dosage: 70 MILLIGRAM, 1 PER DAY
     Route: 065
  3. PREDNISONE. [Suspect]
     Active Substance: PREDNISONE
     Dosage: 60 MILLIGRAM
     Route: 065

REACTIONS (3)
  - Birdshot chorioretinopathy [Recovering/Resolving]
  - Macular oedema [Recovering/Resolving]
  - Rebound effect [Unknown]
